FAERS Safety Report 10756388 (Version 2)
Quarter: 2015Q1

REPORT INFORMATION
  Report Type: Spontaneous
  Country: JP (occurrence: JP)
  Receive Date: 20150202
  Receipt Date: 20150305
  Transmission Date: 20150721
  Serious: No
  Sender: FDA-Public Use
  Company Number: JP-GLAXOSMITHKLINE-JP2015JPN010613

PATIENT
  Sex: Male

DRUGS (14)
  1. PAROMOMYCIN SULFATE. [Concomitant]
     Active Substance: PAROMOMYCIN SULFATE
     Indication: AMOEBIC DYSENTERY
     Dosage: 500 MG, TID
     Dates: start: 20131001, end: 20131010
  2. EPZICOM [Suspect]
     Active Substance: ABACAVIR SULFATE\LAMIVUDINE
     Indication: HIV INFECTION
     Dosage: UNK DF, UNK
     Route: 048
     Dates: start: 20120918
  3. SAMITREL [Concomitant]
     Active Substance: ATOVAQUONE
  4. PREZISTANAIVE [Suspect]
     Active Substance: DARUNAVIR
     Indication: HIV INFECTION
     Dosage: 800 MG, UNK
     Route: 048
     Dates: start: 20111109
  5. KLARICID [Concomitant]
     Active Substance: CLARITHROMYCIN
  6. DENOSINE [Concomitant]
     Active Substance: GANCICLOVIR
  7. VALIXA [Concomitant]
     Active Substance: VALGANCICLOVIR
  8. ZITHROMAC [Concomitant]
     Active Substance: AZITHROMYCIN DIHYDRATE
  9. NORVIR [Suspect]
     Active Substance: RITONAVIR
     Indication: HIV INFECTION
     Dosage: UNK MG, UNK
     Route: 048
     Dates: start: 20111109
  10. CLARITH [Concomitant]
     Active Substance: CLARITHROMYCIN
  11. MYCOBUTIN [Concomitant]
     Active Substance: RIFABUTIN
  12. BAYASPIRIN [Concomitant]
     Active Substance: ASPIRIN
     Indication: ATRIAL FIBRILLATION
     Dosage: 100 MG, QD
     Dates: start: 2013, end: 201402
  13. TENORMIN [Concomitant]
     Active Substance: ATENOLOL
     Indication: PALPITATIONS
     Dosage: 25 MG, QD
     Dates: start: 2013, end: 201402
  14. PRAZAXA [Concomitant]
     Active Substance: DABIGATRAN ETEXILATE MESYLATE
     Indication: PROPHYLAXIS
     Dosage: 150 MG, BID
     Dates: start: 201403

REACTIONS (1)
  - Blood cholesterol increased [Recovering/Resolving]

NARRATIVE: CASE EVENT DATE: 20130402
